FAERS Safety Report 19685734 (Version 1)
Quarter: 2021Q3

REPORT INFORMATION
  Report Type: Report from Study
  Country: US (occurrence: US)
  Receive Date: 20210811
  Receipt Date: 20210811
  Transmission Date: 20211014
  Serious: Yes (Hospitalization, Other)
  Sender: FDA-Public Use
  Company Number: US-TAKEDA-2021TUS048786

PATIENT
  Age: 62 Year
  Sex: Female

DRUGS (4)
  1. TEDUGLUTIDE [Suspect]
     Active Substance: TEDUGLUTIDE
     Indication: SHORT-BOWEL SYNDROME
     Dosage: 1.6 MILLIGRAM, QD
     Route: 058
     Dates: start: 20181212
  2. TEDUGLUTIDE [Suspect]
     Active Substance: TEDUGLUTIDE
     Indication: SHORT-BOWEL SYNDROME
     Dosage: 1.6 MILLIGRAM, QD
     Route: 058
     Dates: start: 20181212
  3. TEDUGLUTIDE [Suspect]
     Active Substance: TEDUGLUTIDE
     Indication: SHORT-BOWEL SYNDROME
     Dosage: 1.6 MILLIGRAM, QD
     Route: 058
     Dates: start: 20181212
  4. TEDUGLUTIDE [Suspect]
     Active Substance: TEDUGLUTIDE
     Indication: SHORT-BOWEL SYNDROME
     Dosage: 1.6 MILLIGRAM, QD
     Route: 058
     Dates: start: 20181212

REACTIONS (5)
  - Anaemia [Recovering/Resolving]
  - Ileus [Recovering/Resolving]
  - Intra-abdominal haematoma [Recovering/Resolving]
  - Abdominal pain [Recovering/Resolving]
  - Thrombosis [Recovering/Resolving]

NARRATIVE: CASE EVENT DATE: 20210702
